FAERS Safety Report 8016374-9 (Version None)
Quarter: 2011Q4

REPORT INFORMATION
  Report Type: 
  Country: None (occurrence: None)
  Receive Date: 20111230
  Receipt Date: 20111222
  Transmission Date: 20120403
  Serious: Yes (Death, Hospitalization, Other)
  Sender: FDA-Public Use
  Company Number: US-ROCHE-1005284

PATIENT
  Sex: Female

DRUGS (10)
  1. NORVASC [Concomitant]
  2. PROTONIX [Concomitant]
  3. ZOFRAN [Concomitant]
  4. MULTIPLE VITAMIN [Concomitant]
  5. ACETAMINOPHEN [Concomitant]
  6. MIRALAX [Concomitant]
  7. ZELBORAF [Suspect]
     Indication: METASTATIC MALIGNANT MELANOMA
     Route: 048
     Dates: start: 20110801
  8. CATAPRES [Concomitant]
  9. KEPPRA [Concomitant]
  10. AMBIEN [Concomitant]

REACTIONS (4)
  - SQUAMOUS CELL CARCINOMA [None]
  - DEATH [None]
  - METASTASES TO CENTRAL NERVOUS SYSTEM [None]
  - LIVER FUNCTION TEST ABNORMAL [None]
